FAERS Safety Report 15077429 (Version 3)
Quarter: 2019Q1

REPORT INFORMATION
  Report Type: Report from Study
  Country: US (occurrence: US)
  Receive Date: 20180627
  Receipt Date: 20190308
  Transmission Date: 20190417
  Serious: No
  Sender: FDA-Public Use
  Company Number: PHEH2018US026159

PATIENT
  Sex: Female

DRUGS (1)
  1. COSENTYX [Suspect]
     Active Substance: SECUKINUMAB
     Indication: PSORIASIS
     Dosage: 300 MG, QMO
     Route: 058
     Dates: start: 201805

REACTIONS (6)
  - Vomiting [Unknown]
  - Malaise [Unknown]
  - Abdominal discomfort [Unknown]
  - Incorrect dose administered [Unknown]
  - Injection site bruising [Unknown]
  - Gastroenteritis viral [Unknown]
